FAERS Safety Report 8309923-4 (Version None)
Quarter: 2012Q2

REPORT INFORMATION
  Report Type: 
  Country: None (occurrence: None)
  Receive Date: 20120425
  Receipt Date: 20120423
  Transmission Date: 20120825
  Serious: Yes (Death, Other)
  Sender: FDA-Public Use
  Company Number: ES-PFIZER INC-2012053242

PATIENT
  Sex: Male

DRUGS (2)
  1. CORTICOSTEROIDS [Concomitant]
     Route: 055
  2. SUTENT [Suspect]
     Indication: METASTATIC RENAL CELL CARCINOMA
     Dosage: 37 MG-50 MG ONCE DAILY
     Route: 048
     Dates: start: 20111001, end: 20111217

REACTIONS (2)
  - DEATH [None]
  - NEUTROPENIC INFECTION [None]
